FAERS Safety Report 16156651 (Version 1)
Quarter: 2019Q2

REPORT INFORMATION
  Report Type: Spontaneous
  Country: PT (occurrence: PT)
  Receive Date: 20190404
  Receipt Date: 20190404
  Transmission Date: 20190711
  Serious: Yes (Death)
  Sender: FDA-Public Use
  Company Number: PT-AUROBINDO-AUR-APL-2019-018774

PATIENT

DRUGS (17)
  1. CEFTRIAXONE. [Suspect]
     Active Substance: CEFTRIAXONE
     Indication: INFECTION IN AN IMMUNOCOMPROMISED HOST
     Dosage: UNK
     Route: 065
  2. CEFTRIAXONE. [Suspect]
     Active Substance: CEFTRIAXONE
     Indication: ASPERGILLUS INFECTION
  3. LINEZOLID. [Suspect]
     Active Substance: LINEZOLID
     Indication: ASPERGILLUS INFECTION
     Dosage: UNK
     Route: 065
  4. SULFAMETHOXAZOLE;TRIMETHOPRIM [Suspect]
     Active Substance: SULFAMETHOXAZOLE\TRIMETHOPRIM
     Indication: INFECTION IN AN IMMUNOCOMPROMISED HOST
  5. SULFAMETHOXAZOLE;TRIMETHOPRIM [Suspect]
     Active Substance: SULFAMETHOXAZOLE\TRIMETHOPRIM
     Indication: NOCARDIOSIS
     Dosage: UNK
     Route: 065
  6. CILASTATIN SODIUM;IMIPENEM [Suspect]
     Active Substance: CILASTATIN SODIUM\IMIPENEM
     Indication: INFECTION IN AN IMMUNOCOMPROMISED HOST
  7. CILASTATIN SODIUM;IMIPENEM [Suspect]
     Active Substance: CILASTATIN SODIUM\IMIPENEM
     Indication: ASPERGILLUS INFECTION
  8. VORICONAZOLE. [Suspect]
     Active Substance: VORICONAZOLE
     Indication: INFECTION IN AN IMMUNOCOMPROMISED HOST
  9. LINEZOLID. [Suspect]
     Active Substance: LINEZOLID
     Indication: INFECTION IN AN IMMUNOCOMPROMISED HOST
  10. CEFTRIAXONE. [Suspect]
     Active Substance: CEFTRIAXONE
     Indication: NOCARDIOSIS
  11. CILASTATIN SODIUM;IMIPENEM [Suspect]
     Active Substance: CILASTATIN SODIUM\IMIPENEM
     Indication: NOCARDIOSIS
     Dosage: UNK
     Route: 065
  12. VORICONAZOLE. [Suspect]
     Active Substance: VORICONAZOLE
     Indication: NOCARDIOSIS
  13. SULFAMETHOXAZOLE;TRIMETHOPRIM [Suspect]
     Active Substance: SULFAMETHOXAZOLE\TRIMETHOPRIM
     Indication: ASPERGILLUS INFECTION
  14. VORICONAZOLE. [Suspect]
     Active Substance: VORICONAZOLE
     Indication: ASPERGILLUS INFECTION
     Dosage: UNK
     Route: 065
  15. PIPERACILLIN SODIUM;TAZOBACTAM SODIUM [Concomitant]
     Active Substance: PIPERACILLIN SODIUM\TAZOBACTAM SODIUM
     Indication: SEPSIS
     Dosage: UNK, EMPIRICAL ANTIBIOTIC THERAPY
     Route: 065
  16. LINEZOLID. [Suspect]
     Active Substance: LINEZOLID
     Indication: NOCARDIOSIS
  17. AZITHROMYCIN ANHYDROUS. [Concomitant]
     Active Substance: AZITHROMYCIN ANHYDROUS
     Indication: SEPSIS
     Dosage: UNK, EMPIRICAL ANTIBIOTIC THERAPY
     Route: 065

REACTIONS (1)
  - Drug ineffective [Fatal]
